FAERS Safety Report 22207430 (Version 1)
Quarter: 2023Q2

REPORT INFORMATION
  Report Type: Other
  Country: US (occurrence: None)
  Receive Date: 20230413
  Receipt Date: 20230413
  Transmission Date: 20230721
  Serious: Yes (Other)
  Sender: FDA-Public Use
  Company Number: US-ROCHE-3327666

PATIENT
  Age: 43 Year
  Sex: Female

DRUGS (1)
  1. OCREVUS [Suspect]
     Active Substance: OCRELIZUMAB
     Indication: Multiple sclerosis
     Route: 065

REACTIONS (5)
  - Post-traumatic stress disorder [Unknown]
  - Bipolar disorder [Unknown]
  - Headache [Unknown]
  - Irritable bowel syndrome [Unknown]
  - Asthma [Unknown]
